FAERS Safety Report 8327922-3 (Version None)
Quarter: 2012Q2

REPORT INFORMATION
  Report Type: 
  Country: None (occurrence: None)
  Receive Date: 20120502
  Receipt Date: 20120425
  Transmission Date: 20120825
  Serious: Yes (Hospitalization, Other)
  Sender: FDA-Public Use
  Company Number: US-CELGENEUS-163-21880-12021179

PATIENT
  Sex: Male

DRUGS (11)
  1. FENTANYL-100 [Concomitant]
     Dosage: 25 MICROGRAM
     Route: 065
     Dates: start: 20110930
  2. ADVAIR DISKUS 100/50 [Concomitant]
     Route: 065
  3. BACTRIM [Concomitant]
     Route: 065
  4. COUMADIN [Concomitant]
     Dosage: 5 MILLIGRAM
     Route: 065
  5. PRILOSEC [Concomitant]
     Route: 065
  6. ZOCOR [Concomitant]
     Route: 065
  7. ACYCLOVIR [Concomitant]
     Route: 065
  8. ZOMETA [Concomitant]
     Route: 065
  9. REVLIMID [Suspect]
     Dosage: 25 MILLIGRAM
     Route: 048
     Dates: start: 20100823
  10. REVLIMID [Suspect]
     Dosage: 10 MILLIGRAM
     Route: 048
     Dates: start: 20110610
  11. VERSED [Concomitant]
     Dosage: 5 MILLIGRAM
     Route: 065
     Dates: start: 20110930

REACTIONS (4)
  - GASTROINTESTINAL HAEMORRHAGE [None]
  - GASTROINTESTINAL TRACT ADENOMA [None]
  - FULL BLOOD COUNT DECREASED [None]
  - SINUSITIS [None]
